FAERS Safety Report 8945959 (Version 1)
Quarter: 2012Q4

REPORT INFORMATION
  Report Type: 
  Country: US (occurrence: US)
  Receive Date: 20121204
  Receipt Date: 20121204
  Transmission Date: 20130627
  Serious: No
  Sender: FDA-Public Use
  Company Number: US-AMGEN-USASP2012060993

PATIENT
  Age: 45 Year
  Sex: Male
  Weight: 116.1 kg

DRUGS (19)
  1. ENBREL [Suspect]
     Indication: PSORIATIC ARTHROPATHY
     Dosage: 50 mg, qwk
     Route: 058
     Dates: start: 20120224, end: 20120606
  2. LIDODERM [Concomitant]
     Dosage: 700 mg, q12h (5%, 1-3 patches)
  3. NEURONTIN [Concomitant]
     Dosage: 400 mg, bid
     Route: 048
  4. LORTAB                             /00607101/ [Concomitant]
     Dosage: 10 mg-500 mg, bid
     Route: 048
  5. ERGOCALCIFEROL [Concomitant]
     Dosage: 50000 unit, qwk
     Route: 048
  6. CIMZIA [Concomitant]
     Dosage: 400 mg, (at week 2 and at week 4)
  7. METHOTREXATE [Concomitant]
     Dosage: 25 mg/ml, qwk
     Route: 058
  8. ULORIC [Concomitant]
     Dosage: 40 mg, qd
     Route: 048
  9. DOXYCYCLINE HYCLATE [Concomitant]
     Dosage: 100 mg, qd
     Route: 048
  10. LANTUS [Concomitant]
     Dosage: 100 U/ml, as directed
  11. MYTELASE [Concomitant]
     Dosage: 10 mg, UNK
  12. NOVOLOG [Concomitant]
     Dosage: 100 U/ml, as directed
  13. ZOCOR [Concomitant]
     Dosage: 20 mg, UNK
  14. INDOMETHACIN                       /00003801/ [Concomitant]
     Dosage: 75 mg, UNK
  15. PRINIVIL [Concomitant]
     Dosage: 20 mg, UNK
  16. GLUCOPHAGE [Concomitant]
     Dosage: 1000 mg, bid
  17. CALCIUM [Concomitant]
     Dosage: 81 mg - 300 mg, qd
     Route: 048
  18. DEPO MEDROL [Concomitant]
     Dosage: 80 mg, UNK
  19. ETHYL CHLORIDE [Concomitant]
     Dosage: UNK

REACTIONS (3)
  - Therapeutic response decreased [Not Recovered/Not Resolved]
  - Lumbar radiculopathy [Unknown]
  - Osteopenia [Unknown]
